FAERS Safety Report 10021905 (Version 1)
Quarter: 2014Q1

REPORT INFORMATION
  Report Type: Spontaneous
  Country: US (occurrence: US)
  Receive Date: 20140319
  Receipt Date: 20140319
  Transmission Date: 20141002
  Serious: Yes (Other)
  Sender: FDA-Public Use
  Company Number: US-GLAXOSMITHKLINE-A1064537A

PATIENT
  Age: 42 Year
  Sex: Female

DRUGS (8)
  1. BENLYSTA [Suspect]
     Indication: SYSTEMIC LUPUS ERYTHEMATOSUS
     Route: 042
     Dates: start: 201306, end: 20130927
  2. PLAQUENIL [Concomitant]
  3. TRIAMTERENE/HCTZ [Concomitant]
  4. PREDNISONE [Concomitant]
  5. PROCARDIA [Concomitant]
  6. UNKNOWN [Concomitant]
  7. ASPIRIN [Concomitant]
  8. FOLGARD [Concomitant]

REACTIONS (10)
  - Disturbance in attention [Recovered/Resolved]
  - Cognitive disorder [Recovered/Resolved]
  - Impaired driving ability [Recovered/Resolved]
  - Confusional state [Recovered/Resolved]
  - Headache [Recovered/Resolved]
  - Feeling abnormal [Recovered/Resolved]
  - Fatigue [Recovered/Resolved]
  - Brain oedema [Recovered/Resolved]
  - Photosensitivity reaction [Unknown]
  - Sunburn [Unknown]
